FAERS Safety Report 20155653 (Version 11)
Quarter: 2024Q4

REPORT INFORMATION
  Report Type: Spontaneous
  Country: US (occurrence: US)
  Receive Date: 20211207
  Receipt Date: 20241010
  Transmission Date: 20250114
  Serious: Yes (Other)
  Sender: PFIZER
  Company Number: US-PFIZER INC-2019513443

PATIENT
  Age: 76 Year
  Sex: Female
  Weight: 55.4 kg

DRUGS (4)
  1. TIKOSYN [Suspect]
     Active Substance: DOFETILIDE
     Indication: Atrial fibrillation
     Dosage: UNK
  2. TIKOSYN [Suspect]
     Active Substance: DOFETILIDE
     Indication: Atrial flutter
     Dosage: 500 UG, 2X/DAY
     Route: 048
     Dates: start: 20221128
  3. TIKOSYN [Suspect]
     Active Substance: DOFETILIDE
     Indication: Cardiac disorder
     Dosage: 500 UG, 2X/DAY, 1 CAP PO (BY MOUTH) BID (TWICE A DAY)
     Route: 048
     Dates: start: 20230523
  4. TIKOSYN [Suspect]
     Active Substance: DOFETILIDE
     Dosage: 500 UG, 2X/DAY, 1 CAP PO (BY MOUTH) BID (TWICE A DAY)
     Route: 048
     Dates: start: 20240429

REACTIONS (4)
  - Therapeutic product effect incomplete [Unknown]
  - Hypoacusis [Unknown]
  - Anxiety [Unknown]
  - Nervousness [Unknown]
